FAERS Safety Report 9438816 (Version 2)
Quarter: 2014Q2

REPORT INFORMATION
  Report Type: Spontaneous
  Country: FR (occurrence: FR)
  Receive Date: 20130802
  Receipt Date: 20140515
  Transmission Date: 20141212
  Serious: Yes (Congenital Anomaly)
  Sender: FDA-Public Use
  Company Number: FR-ASTRAZENECA-2013SE56744

PATIENT
  Sex: Male

DRUGS (4)
  1. CRESTOR [Suspect]
     Route: 064
     Dates: start: 201302, end: 201304
  2. STROMECTOL [Suspect]
     Indication: ACARODERMATITIS
     Dosage: ONCE/SINGLE ADMINISTRATION
     Route: 064
     Dates: start: 201304
  3. GAVISCON [Concomitant]
     Route: 064
  4. CIRKAN [Concomitant]
     Dosage: 1 DAILY FOR SIX DAYS
     Route: 064

REACTIONS (1)
  - Congenital cardiovascular anomaly [Not Recovered/Not Resolved]
